FAERS Safety Report 11663628 (Version 6)
Quarter: 2015Q4

REPORT INFORMATION
  Report Type: Spontaneous
  Country: JP (occurrence: JP)
  Receive Date: 20151027
  Receipt Date: 20151221
  Transmission Date: 20160304
  Serious: Yes (Hospitalization, Other)
  Sender: FDA-Public Use
  Company Number: PHJP2015JP018411

PATIENT
  Age: 66 Year
  Sex: Male

DRUGS (2)
  1. TEGRETOL [Suspect]
     Active Substance: CARBAMAZEPINE
     Indication: ALTERED STATE OF CONSCIOUSNESS
     Dosage: UNK
     Route: 048
  2. TEGRETOL [Suspect]
     Active Substance: CARBAMAZEPINE
     Indication: EPILEPSY

REACTIONS (12)
  - Drug reaction with eosinophilia and systemic symptoms [Not Recovered/Not Resolved]
  - Lymphadenopathy [Recovered/Resolved]
  - Product use issue [Unknown]
  - Liver disorder [Recovered/Resolved]
  - Rash [Recovered/Resolved]
  - Inflammation [Recovered/Resolved]
  - Renal disorder [Recovered/Resolved]
  - Pyrexia [Recovered/Resolved]
  - Epilepsy [Unknown]
  - Erythema [Recovered/Resolved]
  - Agranulocytosis [Recovered/Resolved]
  - Fulminant type 1 diabetes mellitus [Not Recovered/Not Resolved]
